FAERS Safety Report 4668572-X (Version None)
Quarter: 2005Q2

REPORT INFORMATION
  Report Type: 
  Country: None (occurrence: None)
  Receive Date: 20050518
  Receipt Date: 20050428
  Transmission Date: 20051028
  Serious: Yes (Death)
  Sender: FDA-Public Use
  Company Number: B0377034A

PATIENT
  Age: 72 Year
  Sex: Female

DRUGS (4)
  1. LAMICTAL [Suspect]
     Indication: EPILEPSY
     Dosage: 50 MG/SEE DOSAGE TEXT/ORAL
     Route: 048
     Dates: start: 20050118, end: 20050217
  2. VALPROATE SODIUM [Concomitant]
  3. PROPAFENONE HYDROCHLORIDE [Concomitant]
  4. HEPARIN [Concomitant]

REACTIONS (7)
  - ATRIAL FIBRILLATION [None]
  - CONDITION AGGRAVATED [None]
  - MOUTH ULCERATION [None]
  - PYREXIA [None]
  - SOMNOLENCE [None]
  - TOXIC EPIDERMAL NECROLYSIS [None]
  - TREMOR [None]
